FAERS Safety Report 20228319 (Version 2)
Quarter: 2022Q1

REPORT INFORMATION
  Report Type: Report from Study
  Country: GR (occurrence: GR)
  Receive Date: 20211224
  Receipt Date: 20220203
  Transmission Date: 20220423
  Serious: Yes (Other)
  Sender: FDA-Public Use
  Company Number: GR-TEVA-2021-GR-1991700

PATIENT
  Age: 10 Year
  Sex: Female

DRUGS (1)
  1. METHOTREXATE [Suspect]
     Active Substance: METHOTREXATE
     Indication: B precursor type acute leukaemia
     Dosage: 5000MG/M2
     Route: 037

REACTIONS (3)
  - Hemiparesis [Recovered/Resolved]
  - Paralysis [Recovered/Resolved]
  - Dysarthria [Recovered/Resolved]
